FAERS Safety Report 5668657-5 (Version None)
Quarter: 2008Q1

REPORT INFORMATION
  Report Type: 
  Country: None (occurrence: None)
  Receive Date: 20080312
  Receipt Date: 20080303
  Transmission Date: 20080703
  Serious: Yes (Life-Threatening, Hospitalization, Other)
  Sender: FDA-Public Use
  Company Number: S07-USA-05498-01

PATIENT
  Age: 25 Year
  Sex: Male
  Weight: 113.3993 kg

DRUGS (15)
  1. LEXAPRO [Suspect]
     Indication: ANXIETY
     Dosage: MG ONCE PO
     Route: 048
     Dates: start: 20070405, end: 20070405
  2. LEXAPRO [Suspect]
     Indication: DEPRESSION
     Dosage: MG ONCE PO
     Route: 048
     Dates: start: 20070405, end: 20070405
  3. LEXAPRO [Suspect]
     Indication: ANXIETY
     Dosage: 1 MG QD PO
     Route: 048
     Dates: start: 20070201, end: 20070101
  4. LEXAPRO [Suspect]
     Indication: DEPRESSION
     Dosage: 1 MG QD PO
     Route: 048
     Dates: start: 20070201, end: 20070101
  5. XANAX [Suspect]
     Dosage: MG ONCE PO
     Route: 048
     Dates: start: 20070405, end: 20070405
  6. XANAX [Suspect]
     Indication: ANXIETY
     Dosage: 0.5 MG TID
     Dates: start: 19970309, end: 20070321
  7. XANAX [Suspect]
     Indication: DEPRESSION
     Dosage: 0.5 MG TID
     Dates: start: 19970309, end: 20070321
  8. XANAX [Suspect]
     Indication: ANXIETY
     Dosage: 0.25 MG TID
     Dates: start: 20070216, end: 20070101
  9. XANAX [Suspect]
     Indication: DEPRESSION
     Dosage: 0.25 MG TID
     Dates: start: 20070216, end: 20070101
  10. PEXEVA [Suspect]
     Indication: ANXIETY
     Dosage: MG ONCE PO
     Route: 048
     Dates: start: 20070405, end: 20070405
  11. PEXEVA [Suspect]
     Indication: DEPRESSION
     Dosage: MG ONCE PO
     Route: 048
     Dates: start: 20070405, end: 20070405
  12. PEXEVA [Suspect]
     Indication: ANXIETY
     Dosage: 20 MG QD PO
     Route: 048
     Dates: start: 20070309, end: 20070321
  13. PEXEVA [Suspect]
     Indication: DEPRESSION
     Dosage: 20 MG QD PO
     Route: 048
     Dates: start: 20070309, end: 20070321
  14. RISPERDAL [Concomitant]
  15. LITHIUM CARBONATE [Concomitant]

REACTIONS (8)
  - AGITATION [None]
  - ANGER [None]
  - ANXIETY [None]
  - CONDITION AGGRAVATED [None]
  - DEPRESSION [None]
  - MULTIPLE DRUG OVERDOSE INTENTIONAL [None]
  - ROAD TRAFFIC ACCIDENT [None]
  - SUICIDE ATTEMPT [None]
